FAERS Safety Report 13677069 (Version 1)
Quarter: 2017Q2

REPORT INFORMATION
  Report Type: Spontaneous
  Country: US (occurrence: US)
  Receive Date: 20170621
  Receipt Date: 20170621
  Transmission Date: 20170830
  Serious: Yes (Hospitalization)
  Sender: FDA-Public Use
  Company Number: None

PATIENT
  Age: 69 Year
  Sex: Female

DRUGS (7)
  1. PAIN RELIEVER [Concomitant]
  2. PANTOPRAZOLE [Concomitant]
     Active Substance: PANTOPRAZOLE
  3. DUREZOL [Concomitant]
     Active Substance: DIFLUPREDNATE
  4. EZETIMIBE. [Concomitant]
     Active Substance: EZETIMIBE
  5. BROMFENAC SOL [Concomitant]
  6. ENBREL [Suspect]
     Active Substance: ETANERCEPT
     Indication: ANKYLOSING SPONDYLITIS
     Route: 058
     Dates: start: 20110305
  7. ROSUVASTATIN. [Concomitant]
     Active Substance: ROSUVASTATIN

REACTIONS (3)
  - Hospitalisation [None]
  - Surgery [None]
  - Drug dose omission [None]

NARRATIVE: CASE EVENT DATE: 2017
